FAERS Safety Report 13647093 (Version 1)
Quarter: 2017Q2

REPORT INFORMATION
  Report Type: Spontaneous
  Country: CA (occurrence: CA)
  Receive Date: 20170613
  Receipt Date: 20170613
  Transmission Date: 20170830
  Serious: Yes (Other)
  Sender: FDA-Public Use
  Company Number: CA-ASTRAZENECA-2017SE61229

PATIENT
  Sex: Male
  Weight: 94 kg

DRUGS (3)
  1. MULTIVITAMINE [Concomitant]
  2. OMEGA [Concomitant]
     Active Substance: CONVALLARIA MAJALIS\CRATAEGUS LAEVIGATA LEAF\PROXYPHYLLINE
  3. RHINOCORT [Suspect]
     Active Substance: BUDESONIDE
     Indication: SEASONAL ALLERGY
     Route: 045

REACTIONS (2)
  - Pharyngitis [Recovering/Resolving]
  - Disease recurrence [Recovering/Resolving]
